FAERS Safety Report 11118315 (Version 3)
Quarter: 2015Q4

REPORT INFORMATION
  Report Type: Report from Study
  Country: AT (occurrence: AT)
  Receive Date: 20150518
  Receipt Date: 20151014
  Transmission Date: 20160304
  Serious: Yes (Death)
  Sender: FDA-Public Use
  Company Number: AT-ROCHE-1577496

PATIENT
  Age: 64 Year
  Sex: Female
  Weight: 55 kg

DRUGS (34)
  1. SIMVASTATIN. [Concomitant]
     Active Substance: SIMVASTATIN
     Indication: HYPERLIPIDAEMIA
     Route: 048
  2. TRITTICO [Concomitant]
     Active Substance: TRAZODONE HYDROCHLORIDE
     Indication: PROPHYLAXIS
     Route: 048
  3. DEXAMETHASONE INTRAVENOUSLY. [Concomitant]
     Indication: PROPHYLAXIS
     Route: 042
     Dates: start: 20150410, end: 20150411
  4. DEXAMETHASONE INTRAVENOUSLY. [Concomitant]
     Route: 042
     Dates: start: 20150423, end: 20150423
  5. OBINUTUZUMAB [Suspect]
     Active Substance: OBINUTUZUMAB
     Dosage: LAST DOSE PRIOR TO SAE: 23/APR/2015
     Route: 042
  6. PANTOLOC [Concomitant]
     Active Substance: PANTOPRAZOLE SODIUM
     Indication: PROPHYLAXIS
     Route: 048
  7. OBINUTUZUMAB [Suspect]
     Active Substance: OBINUTUZUMAB
     Indication: CHRONIC LYMPHOCYTIC LEUKAEMIA
     Dosage: LAST DOSE PRIOR TO SAE: 23/APR/2015
     Route: 042
     Dates: start: 20150410
  8. CARVEDILOL. [Concomitant]
     Active Substance: CARVEDILOL
     Indication: CORONARY ARTERY DISEASE
     Route: 048
  9. FUROSEMID [Concomitant]
     Active Substance: FUROSEMIDE
     Indication: CORONARY ARTERY DISEASE
     Route: 048
  10. MEXALEN [Concomitant]
     Active Substance: ACETAMINOPHEN
     Route: 048
     Dates: start: 20150423, end: 20150423
  11. RINGER SOLUTION [Concomitant]
     Indication: BLOOD CREATININE INCREASED
     Route: 042
     Dates: start: 20150423, end: 20150424
  12. OBINUTUZUMAB [Suspect]
     Active Substance: OBINUTUZUMAB
     Dosage: CYCLE 1 DAY 15 FOLLOWED BY DAY 1 OF EVERY CYCLE THEREAFTER.?LAST DOSE PRIOR TO SAE: 23/APR/2015
     Route: 042
     Dates: end: 20150427
  13. ALLOPURINOL. [Concomitant]
     Active Substance: ALLOPURINOL
     Indication: HYPERURICAEMIA
     Route: 048
     Dates: start: 20150410, end: 20150413
  14. PERFALGAN [Concomitant]
     Active Substance: ACETAMINOPHEN
     Indication: OSTEOARTHRITIS
     Route: 042
     Dates: start: 20150325, end: 20150325
  15. HALCION [Concomitant]
     Active Substance: TRIAZOLAM
     Indication: PROPHYLAXIS
     Route: 048
     Dates: start: 20150325, end: 20150330
  16. DIBONDRIN [Concomitant]
     Indication: PROPHYLAXIS
     Dosage: 1 AMPOULE
     Route: 042
     Dates: start: 20150410, end: 20150411
  17. BEPANTHEN [Concomitant]
     Active Substance: DEXPANTHENOL
     Indication: LIP BLISTER
     Route: 061
     Dates: start: 20150423
  18. KALIORAL (AUSTRIA) [Concomitant]
     Indication: HYPOKALAEMIA
     Dosage: 1 POUCH
     Route: 048
     Dates: start: 20150424, end: 20150424
  19. OBINUTUZUMAB [Suspect]
     Active Substance: OBINUTUZUMAB
     Dosage: LAST DOSE PRIOR TO SAE: 23/APR/2015
     Route: 042
  20. DEXAMETHASONE INTRAVENOUSLY. [Concomitant]
     Route: 042
     Dates: start: 20150417, end: 20150417
  21. ZANTAC [Concomitant]
     Active Substance: RANITIDINE HYDROCHLORIDE
     Dosage: 1 AMPOULE
     Route: 042
     Dates: start: 20150423, end: 20150423
  22. MEXALEN [Concomitant]
     Active Substance: ACETAMINOPHEN
     Indication: PROPHYLAXIS
     Route: 048
     Dates: start: 20150410, end: 20150411
  23. IBRUTINIB [Suspect]
     Active Substance: IBRUTINIB
     Indication: CHRONIC LYMPHOCYTIC LEUKAEMIA
     Dosage: QD
     Route: 048
     Dates: start: 20150410, end: 20150427
  24. OLEOVIT [Concomitant]
     Indication: OSTEOPOROSIS
     Dosage: 35 DROPS
     Route: 048
  25. LOVENOX [Concomitant]
     Active Substance: ENOXAPARIN SODIUM
     Indication: THROMBOSIS PROPHYLAXIS
     Route: 058
     Dates: start: 20150325
  26. CALCIUM GLYCEROPHOSPHATE\CELLULOSE\POLYETHYLENE GLYCOL\SACCHARIN SODIUM\SODIUM HYDROXIDE\SODIUM LAURYL SULFATE\SODIUM MAGNESIUM SILICATE\SODIUM MONOFLUOROPHOSPHATE\SORBITOL\WATER [Concomitant]
     Active Substance: CALCIUM GLYCEROPHOSPHATE\POLYETHYLENE GLYCOLS\POWDERED CELLULOSE\SACCHARIN SODIUM DIHYDRATE\SODIUM HYDROXIDE\SODIUM LAURYL SULFATE\SODIUM MAGNESIUM SILICATE\SODIUM MONOFLUOROPHOSPHATE\SORBITOL\WATER
     Indication: PROPHYLAXIS
     Dosage: 1 POUCH
     Route: 048
     Dates: start: 20150326, end: 20150330
  27. LENDORM [Concomitant]
     Active Substance: BROTIZOLAM
     Indication: PROPHYLAXIS
     Route: 048
     Dates: start: 20150331
  28. ZANTAC [Concomitant]
     Active Substance: RANITIDINE HYDROCHLORIDE
     Dosage: 1 AMPOULE
     Route: 042
     Dates: start: 20150417, end: 20150417
  29. MEXALEN [Concomitant]
     Active Substance: ACETAMINOPHEN
     Route: 048
     Dates: start: 20150417, end: 20150417
  30. ENALAPRIL [Concomitant]
     Active Substance: ENALAPRIL
     Indication: CORONARY ARTERY DISEASE
     Route: 048
  31. ENALAPRIL/HCT [Concomitant]
     Indication: CORONARY ARTERY DISEASE
     Dosage: 20/12.5 MG
     Route: 048
  32. ZANTAC [Concomitant]
     Active Substance: RANITIDINE HYDROCHLORIDE
     Indication: PROPHYLAXIS
     Dosage: 1 AMPOULE
     Route: 042
     Dates: start: 20150410, end: 20150411
  33. DIBONDRIN [Concomitant]
     Dosage: 1 AMPOULE
     Route: 042
     Dates: start: 20150417, end: 20150417
  34. DIBONDRIN [Concomitant]
     Dosage: 1 AMPOULE
     Route: 042
     Dates: start: 20150423, end: 20150423

REACTIONS (1)
  - Death [Fatal]

NARRATIVE: CASE EVENT DATE: 20150427
